FAERS Safety Report 19026191 (Version 1)
Quarter: 2021Q1

REPORT INFORMATION
  Report Type: Spontaneous
  Country: US (occurrence: US)
  Receive Date: 20210318
  Receipt Date: 20210318
  Transmission Date: 20210420
  Serious: Yes (Other)
  Sender: FDA-Public Use
  Company Number: None

PATIENT
  Age: 60 Year
  Sex: Female
  Weight: 94.5 kg

DRUGS (6)
  1. ALPRAZOLAM 0.5MG TABLETS [Suspect]
     Active Substance: ALPRAZOLAM
     Indication: ANXIETY
     Dosage: ?          QUANTITY:90 TABLET(S);?
     Route: 048
     Dates: start: 20210202, end: 20210202
  2. NAPROXEN. [Concomitant]
     Active Substance: NAPROXEN
  3. ALPRAZOLAM 0.5MG TABLETS [Suspect]
     Active Substance: ALPRAZOLAM
     Indication: PANIC ATTACK
     Dosage: ?          QUANTITY:90 TABLET(S);?
     Route: 048
     Dates: start: 20210202, end: 20210202
  4. SYNTHROID [Concomitant]
     Active Substance: LEVOTHYROXINE SODIUM
  5. ALPRAZOLAM (GENERIC XANAX) [Concomitant]
  6. D?AMPHETAMINE ER SALT COMBO CP (GENERIC ADDERALL XR) [Concomitant]

REACTIONS (8)
  - Dizziness [None]
  - Vision blurred [None]
  - Somnolence [None]
  - Product substitution issue [None]
  - Feeling abnormal [None]
  - Gait disturbance [None]
  - Anxiety [None]
  - Disturbance in attention [None]

NARRATIVE: CASE EVENT DATE: 20210202
